FAERS Safety Report 11236229 (Version 3)
Quarter: 2015Q4

REPORT INFORMATION
  Report Type: Spontaneous
  Country: JP (occurrence: JP)
  Receive Date: 20150702
  Receipt Date: 20151210
  Transmission Date: 20160304
  Serious: Yes (Death, Other)
  Sender: FDA-Public Use
  Company Number: JP-SPECTRUM PHARMACEUTICALS, INC.-14-Z-JP-00243

PATIENT
  Age: 71 Year
  Sex: Male

DRUGS (10)
  1. RITUXIMAB [Suspect]
     Active Substance: RITUXIMAB
     Dosage: UNK, UNKNOWN
     Route: 065
  2. ZEVALIN [Suspect]
     Active Substance: IBRITUMOMAB TIUXETAN
     Indication: B-CELL LYMPHOMA REFRACTORY
     Dosage: 11.1 MBQ/KG, SINGLE
     Route: 065
     Dates: start: 20101214, end: 20101214
  3. ZEVALIN [Suspect]
     Active Substance: IBRITUMOMAB TIUXETAN
     Dosage: UNK, SINGLE
     Route: 042
  4. RITUXIMAB [Suspect]
     Active Substance: RITUXIMAB
     Dosage: UNK, UNK, AS PART OF CHOP
     Route: 065
  5. CYCLOPHOSPHAMIDE. [Suspect]
     Active Substance: CYCLOPHOSPHAMIDE
     Indication: B-CELL LYMPHOMA REFRACTORY
     Dosage: UNK, UNKNOWN, AS PART OF CHOP
     Route: 065
  6. DOXORUBICIN [Suspect]
     Active Substance: DOXORUBICIN
     Indication: B-CELL LYMPHOMA REFRACTORY
     Dosage: UNK, UNKNOWN, AS PART OF CHOP
     Route: 065
  7. VINCRISTINE [Suspect]
     Active Substance: VINCRISTINE
     Indication: B-CELL LYMPHOMA REFRACTORY
     Dosage: UNK, UNKNOWN, AS PART OF CHOP
     Route: 065
  8. RITUXIMAB [Suspect]
     Active Substance: RITUXIMAB
     Indication: B-CELL LYMPHOMA REFRACTORY
     Dosage: 250 MG/M2, SINGLE
     Route: 042
     Dates: start: 20101214, end: 20101214
  9. PREDNISOLONE. [Suspect]
     Active Substance: PREDNISOLONE
     Indication: B-CELL LYMPHOMA REFRACTORY
     Dosage: UNK, UNKNOWN, AS PART OF CHOP
     Route: 065
  10. FLUDARABINE [Suspect]
     Active Substance: FLUDARABINE PHOSPHATE
     Indication: B-CELL LYMPHOMA REFRACTORY
     Dosage: UNK, UNKNOWN, WITH RITUXIMAB
     Route: 065

REACTIONS (1)
  - Pancreatic carcinoma [Fatal]

NARRATIVE: CASE EVENT DATE: 20111121
